FAERS Safety Report 7305746-3 (Version None)
Quarter: 2011Q1

REPORT INFORMATION
  Report Type: 
  Country: None (occurrence: None)
  Receive Date: 20110222
  Receipt Date: 20110216
  Transmission Date: 20110831
  Serious: Yes (Other)
  Sender: FDA-Public Use
  Company Number: B0685857A

PATIENT
  Sex: Female

DRUGS (13)
  1. BAKTAR [Concomitant]
     Indication: PROPHYLAXIS
     Dosage: 1IUAX PER DAY
     Route: 048
  2. OXYCONTIN [Concomitant]
     Dosage: 40MG PER DAY
     Route: 048
  3. ALKERAN [Suspect]
     Indication: STEM CELL TRANSPLANT
     Dosage: 100MGM2 PER DAY
     Route: 042
     Dates: start: 20101116, end: 20101117
  4. FAMOTIDINE [Concomitant]
     Indication: GASTRITIS
     Dosage: 40MG PER DAY
     Route: 048
  5. VALPROIC ACID [Concomitant]
  6. ALEVIATIN [Concomitant]
     Indication: EPILEPSY
     Route: 048
     Dates: start: 20101119, end: 20101121
  7. CIPROFLOXACIN HCL [Concomitant]
     Indication: PROPHYLAXIS
     Dosage: 600MG PER DAY
     Route: 048
  8. ZOVIRAX [Concomitant]
     Indication: PROPHYLAXIS
     Dosage: 100MG PER DAY
     Route: 048
  9. PHENYTOIN [Concomitant]
     Indication: EPILEPSY
     Dosage: 100MG PER DAY
     Route: 048
     Dates: start: 20101119, end: 20101121
  10. DEPAKENE [Concomitant]
     Indication: EPILEPSY
     Route: 048
     Dates: start: 20101119
  11. VALPROATE SODIUM [Concomitant]
     Indication: EPILEPSY
     Dosage: 2400MG PER DAY
     Route: 054
     Dates: start: 20101124, end: 20101202
  12. FLUCONAZOLE [Concomitant]
     Indication: PROPHYLAXIS
     Dosage: 100MG PER DAY
     Route: 048
  13. ALEVIATIN [Concomitant]
     Dates: start: 20101122, end: 20101202

REACTIONS (4)
  - EPILEPSY [None]
  - ATAXIA [None]
  - ATONIC SEIZURES [None]
  - SOMNOLENCE [None]
